FAERS Safety Report 5337002-7 (Version None)
Quarter: 2007Q2

REPORT INFORMATION
  Report Type: 
  Country: None (occurrence: None)
  Receive Date: 20070524
  Receipt Date: 20070518
  Transmission Date: 20071010
  Serious: Yes (Hospitalization, Disabling)
  Sender: FDA-Public Use
  Company Number: GXKR2007JP04252

PATIENT
  Age: 75 Year
  Sex: Male
  Weight: 52 kg

DRUGS (6)
  1. CEFOPERAZONE+SULBACTAM (NGX) (CEFOPERAZONE, SULBACTAM) UNKNOWN [Suspect]
     Indication: PERITONEAL ABSCESS
  2. LIDOCAINE [Concomitant]
  3. PROPOFOL [Concomitant]
  4. VECURONIUM (VECURONIUM) [Concomitant]
  5. SEVOFLURANE [Concomitant]
  6. ROPIVACAINE (ROPIVACAINE) [Concomitant]

REACTIONS (12)
  - ACTIVATED PARTIAL THROMBOPLASTIN TIME PROLONGED [None]
  - ALANINE AMINOTRANSFERASE INCREASED [None]
  - ASPARTATE AMINOTRANSFERASE INCREASED [None]
  - BLOOD ALKALINE PHOSPHATASE INCREASED [None]
  - BLOOD BILIRUBIN INCREASED [None]
  - COAGULOPATHY [None]
  - EXTRADURAL HAEMATOMA [None]
  - GAIT DISTURBANCE [None]
  - ILEUS [None]
  - MUSCLE ATROPHY [None]
  - PARALYSIS [None]
  - VITAMIN K DEFICIENCY [None]
